FAERS Safety Report 14820558 (Version 1)
Quarter: 2018Q2

REPORT INFORMATION
  Report Type: Report from Study
  Country: CN (occurrence: CN)
  Receive Date: 20180427
  Receipt Date: 20180427
  Transmission Date: 20180711
  Serious: Yes (Death)
  Sender: FDA-Public Use
  Company Number: CN-MYLANLABS-2018M1026608

PATIENT
  Age: 42 Year
  Sex: Male

DRUGS (9)
  1. CLADRIBINE. [Suspect]
     Active Substance: CLADRIBINE
     Indication: ACUTE MYELOID LEUKAEMIA
     Dosage: FOR 2 HOURS.
     Route: 041
  2. CYTARABINE. [Suspect]
     Active Substance: CYTARABINE
     Indication: ACUTE MYELOID LEUKAEMIA
     Dosage: INFUSION, FOR 4 HOURS.
     Route: 065
  3. MITOXANTRONE [Suspect]
     Active Substance: MITOXANTRONE HYDROCHLORIDE
     Indication: ACUTE MYELOID LEUKAEMIA
     Route: 041
  4. MYCOPHENOLATE MOFETIL. [Concomitant]
     Active Substance: MYCOPHENOLATE MOFETIL
     Indication: PROPHYLAXIS AGAINST GRAFT VERSUS HOST DISEASE
     Dosage: FROM DAYS-1
     Route: 048
  5. BUSULFAN. [Suspect]
     Active Substance: BUSULFAN
     Indication: ACUTE MYELOID LEUKAEMIA
     Dosage: FROM DAY -7 TO DAY -4 OF TRANSPLANT
     Route: 065
  6. CYCLOSPORINE. [Concomitant]
     Active Substance: CYCLOSPORINE
     Indication: PROPHYLAXIS AGAINST GRAFT VERSUS HOST DISEASE
     Dosage: ADMINISTERED FROM DAY -1 UNTIL RECOVERY OF BOWEL FUNCTION
     Route: 042
  7. ATG-FRESENIUS [Concomitant]
     Active Substance: LAPINE T-LYMPHOCYTE IMMUNE GLOBULIN
     Indication: PROPHYLAXIS AGAINST GRAFT VERSUS HOST DISEASE
     Dosage: FROM DAYS -4 TO -1
     Route: 065
  8. CYCLOPHOSPHAMIDE. [Suspect]
     Active Substance: CYCLOPHOSPHAMIDE
     Indication: ACUTE MYELOID LEUKAEMIA
     Dosage: FROM DAY -3 TO DAY -2 OF TRANSPLANT
     Route: 065
  9. CYCLOSPORINE. [Concomitant]
     Active Substance: CYCLOSPORINE
     Dosage: TO ACHIEVE A BLOOD CONCENTRATION OF 200 TO 300 NG/ML FOR 90 DAYS.
     Route: 048

REACTIONS (4)
  - Pyrexia [Fatal]
  - Infection [Fatal]
  - Disseminated intravascular coagulation [Fatal]
  - Left ventricular failure [Fatal]
